FAERS Safety Report 4356120-3 (Version None)
Quarter: 2004Q2

REPORT INFORMATION
  Report Type: 
  Country: None (occurrence: None)
  Receive Date: 20040511
  Receipt Date: 20040429
  Transmission Date: 20050107
  Serious: Yes (Other)
  Sender: FDA-Public Use
  Company Number: 12564902

PATIENT
  Age: 41 Year
  Sex: Female

DRUGS (3)
  1. ZIDOVUDINE [Suspect]
     Indication: HIV INFECTION
     Dates: start: 20031121
  2. DIDANOSINE [Suspect]
     Indication: HIV INFECTION
     Dates: start: 20031121
  3. NEVIRAPINE [Suspect]
     Indication: HIV INFECTION
     Dates: start: 20031121

REACTIONS (1)
  - BLOOD AMYLASE INCREASED [None]
